FAERS Safety Report 8588136-5 (Version None)
Quarter: 2012Q3

REPORT INFORMATION
  Report Type: 
  Country: None (occurrence: None)
  Receive Date: 20120813
  Receipt Date: 20120806
  Transmission Date: 20120928
  Serious: Yes (Hospitalization, Other)
  Sender: FDA-Public Use
  Company Number: JP-MERCK-2012SP019397

PATIENT

DRUGS (30)
  1. TELAVIC [Suspect]
     Indication: HEPATITIS C
     Dosage: 2250 MG, QD
     Route: 048
     Dates: start: 20120124, end: 20120201
  2. FAMOTIDINE [Concomitant]
     Indication: PROPHYLAXIS
     Dosage: 40 MG, QD
     Route: 048
     Dates: start: 20120202, end: 20120618
  3. ANTIVIRAL (UNSPECIFIED) [Concomitant]
     Indication: PRODUCT USED FOR UNKNOWN INDICATION
     Dosage: UPDATE(15MAY2012)
     Route: 048
     Dates: start: 20120403
  4. ZYPREXA [Concomitant]
     Dosage: UPDATE(15MAY2012)
     Route: 048
     Dates: start: 20120406, end: 20120417
  5. TAIPEMIN [Concomitant]
     Indication: DIARRHOEA
     Dosage: UPDATE(15MAY2012)
     Route: 065
     Dates: start: 20120416, end: 20120418
  6. REBETOL [Suspect]
     Dosage: 200 MG, QD
     Route: 048
     Dates: start: 20120328, end: 20120328
  7. BETAMETHASONE [Concomitant]
     Route: 065
     Dates: start: 20120407
  8. RESLIN TABLETS 25 [Concomitant]
     Indication: PRODUCT USED FOR UNKNOWN INDICATION
     Dosage: UPDATE (26APR2012) , UPDATE(15MAY2012)
     Route: 065
     Dates: start: 20120203, end: 20120328
  9. BARACLUDE [Concomitant]
     Indication: HEPATITIS B
     Dosage: 0.5 MG, QD
     Route: 048
     Dates: start: 20120403, end: 20120604
  10. PEGINTERFERON ALFA-2B [Suspect]
     Indication: HEPATITIS C
     Dosage: 1.5 ?G/KG, QW
     Route: 058
     Dates: start: 20120124, end: 20120327
  11. PEGINTERFERON ALFA-2B [Suspect]
     Dosage: 1.5 ?G/KG, QW
     Route: 058
     Dates: start: 20120410, end: 20120410
  12. REBETOL [Suspect]
     Indication: HEPATITIS C
     Dosage: 800 MG, QD
     Route: 048
     Dates: start: 20120124, end: 20120326
  13. TELAVIC [Suspect]
     Dosage: 750 MG, QD
     Route: 048
     Dates: start: 20120327, end: 20120327
  14. ALPRAZOLAM [Concomitant]
     Indication: PRODUCT USED FOR UNKNOWN INDICATION
     Dosage: UPDATE(15MAY2012)
     Route: 048
     Dates: start: 20120327, end: 20120328
  15. CEFAZOLIN SODIUM [Concomitant]
     Indication: INFECTION
     Dosage: UPDATE(15MAY2012)
     Route: 065
     Dates: start: 20120329, end: 20120401
  16. MIYA BM [Concomitant]
     Indication: DIARRHOEA
     Dosage: UPDATE(15MAY2012)
     Route: 065
     Dates: start: 20120416, end: 20120418
  17. REBETOL [Suspect]
     Dosage: 400 MG, QD
     Route: 048
     Dates: start: 20120410, end: 20120413
  18. TELAVIC [Suspect]
     Dosage: 1500 MG, QD
     Route: 048
     Dates: start: 20120203, end: 20120326
  19. ANTIMICROBIAL (UNSPECIFIED) [Concomitant]
     Indication: HYPERTHERMIA
     Dosage: UPDATE (26APR2012)
     Route: 065
     Dates: end: 20120402
  20. ALLEGRA [Concomitant]
     Indication: PRODUCT USED FOR UNKNOWN INDICATION
     Dosage: UPDATE(15MAY2012)
     Route: 048
     Dates: start: 20120313, end: 20120328
  21. REBETOL [Suspect]
     Dosage: 400 MG, QD
     Route: 048
     Dates: start: 20120327, end: 20120327
  22. CODEINE PHOSPHATE [Concomitant]
     Indication: PRODUCT USED FOR UNKNOWN INDICATION
     Dosage: UPDATE(15MAY2012) POWDER
     Route: 065
     Dates: start: 20120417, end: 20120418
  23. TELAVIC [Suspect]
     Dosage: 1000 MG, QD
     Route: 048
     Dates: start: 20120202, end: 20120202
  24. ZYPREXA [Concomitant]
     Indication: PRODUCT USED FOR UNKNOWN INDICATION
     Dosage: UPDATE (26APR2012) ,UPDATE(15MAY2012)
     Route: 065
     Dates: start: 20120203, end: 20120328
  25. DICLOFENAC SODIUM [Concomitant]
     Indication: HYPERTHERMIA
     Dosage: UPDATE(15MAY2012)
     Route: 054
     Dates: start: 20120329, end: 20120402
  26. LECICARBON [Concomitant]
     Indication: CONSTIPATION
     Dosage: UPDATE(15MAY2012): NEW LECICARBON SUPPOSITORY
     Route: 054
     Dates: start: 20120404, end: 20120404
  27. ALPRAZOLAM [Concomitant]
     Indication: DEPRESSION
     Dosage: UPDATE (26APR2012)
     Route: 065
     Dates: start: 20120202, end: 20120203
  28. CORTICOSTEROIDS (UNSPECIFIED) [Concomitant]
     Indication: DRUG ERUPTION
     Dosage: UPDATE (26APR2012)
     Route: 065
     Dates: start: 20120320
  29. CEFAZOLIN [Concomitant]
     Indication: PRODUCT USED FOR UNKNOWN INDICATION
     Dosage: UPDATE(15MAY2012)
     Route: 042
     Dates: start: 20120329, end: 20120401
  30. URSO 250 [Concomitant]
     Indication: HEPATITIS C
     Dosage: 600 MG, QD
     Route: 048
     Dates: start: 20120529

REACTIONS (6)
  - DEPRESSIVE SYMPTOM [None]
  - HAEMOGLOBIN DECREASED [None]
  - ERYTHEMA MULTIFORME [None]
  - STEVENS-JOHNSON SYNDROME [None]
  - LISTLESS [None]
  - WHITE BLOOD CELL COUNT INCREASED [None]
